FAERS Safety Report 8791206 (Version 1)
Quarter: 2012Q4

REPORT INFORMATION
  Report Type: Spontaneous
  Country: US (occurrence: None)
  Receive Date: 20120911
  Receipt Date: 20120911
  Transmission Date: 20130627
  Serious: Yes (Hospitalization, Disabling, Other)
  Sender: FDA-Public Use
  Company Number: ACO_31772_2012

PATIENT
  Sex: Male
  Weight: 163.7 kg

DRUGS (2)
  1. AMPYRA [Suspect]
     Indication: GAIT DISTURBANCE
     Dates: start: 201012
  2. ALL OTHER THERAPEUTIC PRODUCTS [Suspect]

REACTIONS (4)
  - Cerebrovascular accident [None]
  - Renal disorder [None]
  - Abasia [None]
  - Malaise [None]
